FAERS Safety Report 17074231 (Version 14)
Quarter: 2021Q2

REPORT INFORMATION
  Report Type: Report from Study
  Country: JP (occurrence: JP)
  Receive Date: 20191126
  Receipt Date: 20210511
  Transmission Date: 20210716
  Serious: Yes (Hospitalization)
  Sender: FDA-Public Use
  Company Number: JP-ROCHE-2477893

PATIENT
  Age: 57 Year
  Sex: Male
  Weight: 62 kg

DRUGS (87)
  1. METHYLPREDNISOLONE SODIUM SUCCINATE. [Suspect]
     Active Substance: METHYLPREDNISOLONE SODIUM SUCCINATE
     Dosage: START AT 11:04?STOP AT 11:22
     Route: 042
     Dates: start: 20200324, end: 20200324
  2. ETHYL ICOSAPENTATE [Concomitant]
     Active Substance: ICOSAPENT ETHYL
     Indication: DYSLIPIDAEMIA
     Dates: end: 20200131
  3. APREPITANT. [Concomitant]
     Active Substance: APREPITANT
     Dates: start: 20200108, end: 20200108
  4. DIPHENHYDRAMINE HYDROCHLORIDE. [Concomitant]
     Active Substance: DIPHENHYDRAMINE HYDROCHLORIDE
     Dates: start: 20201006, end: 20201006
  5. DIPHENHYDRAMINE HYDROCHLORIDE. [Concomitant]
     Active Substance: DIPHENHYDRAMINE HYDROCHLORIDE
     Dates: start: 20210323, end: 20210323
  6. VONOPRAZAN FUMARATE [Concomitant]
     Active Substance: VONOPRAZAN FUMARATE
     Indication: GASTRITIS
     Dates: start: 20191106, end: 20200131
  7. VONOPRAZAN FUMARATE [Concomitant]
     Active Substance: VONOPRAZAN FUMARATE
     Dates: start: 20200207
  8. APREPITANT. [Concomitant]
     Active Substance: APREPITANT
     Dates: start: 20200325, end: 20200326
  9. ACETAMINOPHEN. [Concomitant]
     Active Substance: ACETAMINOPHEN
     Dosage: CYCLE 03 DAY 1?START TIME: 13.37?END TIME: 13.37
     Dates: start: 20200107, end: 20200107
  10. ACETAMINOPHEN. [Concomitant]
     Active Substance: ACETAMINOPHEN
     Route: 048
     Dates: start: 20200421, end: 20200421
  11. ACETAMINOPHEN. [Concomitant]
     Active Substance: ACETAMINOPHEN
     Route: 048
     Dates: start: 20210126, end: 20210126
  12. DIPHENHYDRAMINE HYDROCHLORIDE. [Concomitant]
     Active Substance: DIPHENHYDRAMINE HYDROCHLORIDE
     Dates: start: 20200808, end: 20201006
  13. PALONOSETRON HYDROCHLORIDE. [Concomitant]
     Active Substance: PALONOSETRON HYDROCHLORIDE
     Indication: PROPHYLAXIS OF NAUSEA AND VOMITING
     Dates: start: 20191107, end: 20191107
  14. SOLULACT [Concomitant]
     Active Substance: CALCIUM CHLORIDE\POTASSIUM CHLORIDE\SODIUM CHLORIDE\SODIUM LACTATE
     Indication: LOWER GASTROINTESTINAL HAEMORRHAGE
     Dates: start: 20200131, end: 20200201
  15. LENOGRASTIM [Concomitant]
     Active Substance: LENOGRASTIM
     Dates: start: 20200221, end: 20200222
  16. MAGNESIUM OXIDE. [Concomitant]
     Active Substance: MAGNESIUM OXIDE
     Indication: CONSTIPATION PROPHYLAXIS
     Dates: start: 20200226
  17. INFLUENZA VACCINE [Concomitant]
     Active Substance: INFLUENZA VIRUS VACCINE
     Indication: INFLUENZA IMMUNISATION
     Dates: start: 20201006, end: 20201006
  18. METHYLPREDNISOLONE SODIUM SUCCINATE. [Suspect]
     Active Substance: METHYLPREDNISOLONE SODIUM SUCCINATE
     Dosage: CYCLE 03 DAY 1?START TIME: 14:10?END TIME: 14:10
     Route: 042
     Dates: start: 20200107, end: 20200107
  19. METHYLPREDNISOLONE SODIUM SUCCINATE. [Suspect]
     Active Substance: METHYLPREDNISOLONE SODIUM SUCCINATE
     Dosage: START AT 11:00?STOP AT: 11:15
     Route: 042
     Dates: start: 20200811, end: 20200811
  20. PITAVASTATIN CALCIUM [Concomitant]
     Active Substance: PITAVASTATIN CALCIUM
     Indication: DYSLIPIDAEMIA
     Dates: end: 20200131
  21. APREPITANT. [Concomitant]
     Active Substance: APREPITANT
     Dates: start: 20200107, end: 20200107
  22. ACETAMINOPHEN. [Concomitant]
     Active Substance: ACETAMINOPHEN
     Dosage: CYCLE 03 DAY 1?START TIME: 10:59?END TIME: 10:59
     Dates: start: 20200225, end: 20200225
  23. ACETAMINOPHEN. [Concomitant]
     Active Substance: ACETAMINOPHEN
     Dosage: CYCLE 04 DAY 1?START TIME: 10:59?END TIME: 10:59
     Dates: start: 20200324, end: 20200324
  24. DIPHENHYDRAMINE HYDROCHLORIDE. [Concomitant]
     Active Substance: DIPHENHYDRAMINE HYDROCHLORIDE
     Dosage: START AT 11:15?END AT: 11:15
     Route: 048
     Dates: start: 20191203, end: 20191203
  25. DIPHENHYDRAMINE HYDROCHLORIDE. [Concomitant]
     Active Substance: DIPHENHYDRAMINE HYDROCHLORIDE
     Route: 048
     Dates: start: 20200616, end: 20200616
  26. DIPHENHYDRAMINE HYDROCHLORIDE. [Concomitant]
     Active Substance: DIPHENHYDRAMINE HYDROCHLORIDE
     Dates: start: 20191118, end: 20191118
  27. DIPHENHYDRAMINE HYDROCHLORIDE. [Concomitant]
     Active Substance: DIPHENHYDRAMINE HYDROCHLORIDE
     Dates: start: 20200107, end: 20200107
  28. TRIMETHOPRIM SULFAMETHOXAZOLE [Concomitant]
     Active Substance: SULFAMETHOXAZOLE\TRIMETHOPRIM
     Dates: start: 20200207
  29. PALONOSETRON HYDROCHLORIDE. [Concomitant]
     Active Substance: PALONOSETRON HYDROCHLORIDE
     Dates: start: 20191203, end: 20191203
  30. PALONOSETRON HYDROCHLORIDE. [Concomitant]
     Active Substance: PALONOSETRON HYDROCHLORIDE
     Dates: start: 20200421, end: 20200421
  31. PALONOSETRON HYDROCHLORIDE. [Concomitant]
     Active Substance: PALONOSETRON HYDROCHLORIDE
     Dates: start: 20200225, end: 20200225
  32. ACICLOVIR [Concomitant]
     Active Substance: ACYCLOVIR
     Dates: start: 20200207
  33. HEPARINOID [Concomitant]
     Active Substance: CHONDROITIN SULFATE (BOVINE)
     Indication: DRY SKIN
     Dates: start: 20200908, end: 20201006
  34. METHYLPREDNISOLONE SODIUM SUCCINATE. [Suspect]
     Active Substance: METHYLPREDNISOLONE SODIUM SUCCINATE
     Dosage: START: 13: 13?STOP: 13: 30
     Route: 042
     Dates: start: 20200616, end: 20200616
  35. ACETAMINOPHEN. [Concomitant]
     Active Substance: ACETAMINOPHEN
     Dosage: TIME: 11:15
     Route: 048
     Dates: start: 20191106, end: 20191119
  36. ACETAMINOPHEN. [Concomitant]
     Active Substance: ACETAMINOPHEN
     Dosage: TIME: 11:15?STOP:11:15
     Route: 048
     Dates: start: 20191203, end: 20191203
  37. ACETAMINOPHEN. [Concomitant]
     Active Substance: ACETAMINOPHEN
     Route: 048
     Dates: start: 20201006, end: 20201006
  38. DIPHENHYDRAMINE HYDROCHLORIDE. [Concomitant]
     Active Substance: DIPHENHYDRAMINE HYDROCHLORIDE
     Dosage: START AT 10:40?END AT: 10:40
     Route: 048
     Dates: start: 20191119, end: 20191119
  39. BETAMETHASONE BUTYRATE PROPIONATE [Concomitant]
     Active Substance: BETAMETHASONE BUTYRATE PROPIONATE
     Indication: VASCULITIS
     Dates: start: 20200108, end: 20200201
  40. METHYLPREDNISOLONE SODIUM SUCCINATE. [Suspect]
     Active Substance: METHYLPREDNISOLONE SODIUM SUCCINATE
     Indication: PREMEDICATION
     Dosage: START AT 10:55?END AT: 11:15
     Route: 042
     Dates: start: 20191106, end: 20191106
  41. METHYLPREDNISOLONE SODIUM SUCCINATE. [Suspect]
     Active Substance: METHYLPREDNISOLONE SODIUM SUCCINATE
     Route: 042
     Dates: start: 20200421, end: 20200421
  42. PITAVASTATIN CALCIUM [Concomitant]
     Active Substance: PITAVASTATIN CALCIUM
     Dates: start: 20200207
  43. APREPITANT. [Concomitant]
     Active Substance: APREPITANT
     Indication: PROPHYLAXIS OF NAUSEA AND VOMITING
     Dates: start: 20191108, end: 20191109
  44. APREPITANT. [Concomitant]
     Active Substance: APREPITANT
     Dates: start: 20191203, end: 20191203
  45. APREPITANT. [Concomitant]
     Active Substance: APREPITANT
     Dates: start: 20200226, end: 20200327
  46. APREPITANT. [Concomitant]
     Active Substance: APREPITANT
     Dates: start: 20200327, end: 20200327
  47. APREPITANT. [Concomitant]
     Active Substance: APREPITANT
     Dates: start: 20200421, end: 20200421
  48. DIPHENHYDRAMINE HYDROCHLORIDE. [Concomitant]
     Active Substance: DIPHENHYDRAMINE HYDROCHLORIDE
     Route: 048
     Dates: start: 20200421, end: 20200421
  49. LEVOFLOXACIN HEMIHYDRATE [Concomitant]
     Active Substance: LEVOFLOXACIN
     Dates: start: 20200421, end: 20200427
  50. LENOGRASTIM [Concomitant]
     Active Substance: LENOGRASTIM
     Indication: NEUTROPENIA
     Dates: start: 20200218, end: 20200221
  51. PEGFILGRASTIM [Concomitant]
     Active Substance: PEGFILGRASTIM
     Dates: start: 20200228, end: 20200228
  52. OBINUTUZUMAB. [Suspect]
     Active Substance: OBINUTUZUMAB
     Indication: FOLLICULAR LYMPHOMA
     Dosage: ON 13/NOV/2019, HE RECEIVED RECENT DOSE OF OBINUTUZUMAB PRIOR TO EVENT.
     Route: 042
     Dates: start: 20191106
  53. BENDAMUSTINE [Suspect]
     Active Substance: BENDAMUSTINE
     Indication: FOLLICULAR LYMPHOMA
     Dosage: ON 08/NOV/2019, HE RECEIVED RECENT DOSE OF BENDAMUSTINE PRIOR TO EVENT.
     Route: 042
     Dates: start: 20191107
  54. METHYLPREDNISOLONE SODIUM SUCCINATE. [Suspect]
     Active Substance: METHYLPREDNISOLONE SODIUM SUCCINATE
     Dosage: START AT 10:49?STOP AT 11:08
     Route: 042
     Dates: start: 20201201, end: 20201201
  55. APREPITANT. [Concomitant]
     Active Substance: APREPITANT
     Dates: start: 20191107, end: 20191107
  56. APREPITANT. [Concomitant]
     Active Substance: APREPITANT
     Dates: start: 20191204, end: 20191205
  57. APREPITANT. [Concomitant]
     Active Substance: APREPITANT
     Dates: start: 20200225, end: 20200225
  58. APREPITANT. [Concomitant]
     Active Substance: APREPITANT
     Dates: start: 20200226, end: 20200226
  59. ACETAMINOPHEN. [Concomitant]
     Active Substance: ACETAMINOPHEN
     Route: 048
     Dates: start: 20200616, end: 20200616
  60. DIPHENHYDRAMINE HYDROCHLORIDE. [Concomitant]
     Active Substance: DIPHENHYDRAMINE HYDROCHLORIDE
     Dosage: CYCLE 03 DAY 1?START TIME: 13.37?END TIME: 13.37
     Route: 048
     Dates: start: 20200107, end: 20200107
  61. DIPHENHYDRAMINE HYDROCHLORIDE. [Concomitant]
     Active Substance: DIPHENHYDRAMINE HYDROCHLORIDE
     Dosage: CYCLE 03 DAY 1?START TIME: 10:59?END TIME: 10:59
     Route: 048
     Dates: start: 20200324, end: 20200324
  62. DIPHENHYDRAMINE HYDROCHLORIDE. [Concomitant]
     Active Substance: DIPHENHYDRAMINE HYDROCHLORIDE
     Dates: start: 20200811, end: 20200811
  63. DIPHENHYDRAMINE HYDROCHLORIDE. [Concomitant]
     Active Substance: DIPHENHYDRAMINE HYDROCHLORIDE
     Dates: start: 20201201, end: 20201201
  64. ACICLOVIR [Concomitant]
     Active Substance: ACYCLOVIR
     Indication: INFECTION PROPHYLAXIS
     Dates: start: 20191106, end: 20200131
  65. BETAMETHASONE BUTYRATE PROPIONATE [Concomitant]
     Active Substance: BETAMETHASONE BUTYRATE PROPIONATE
     Dates: start: 20200301, end: 20200519
  66. LANSOPRAZOLE. [Concomitant]
     Active Substance: LANSOPRAZOLE
     Dates: start: 20200131, end: 20200206
  67. SOLDEM 3PG [Concomitant]
     Indication: LOWER GASTROINTESTINAL HAEMORRHAGE
     Dates: start: 20200202, end: 20200206
  68. PEGFILGRASTIM [Concomitant]
     Active Substance: PEGFILGRASTIM
     Dates: start: 20200424, end: 20200424
  69. METHYLPREDNISOLONE SODIUM SUCCINATE. [Suspect]
     Active Substance: METHYLPREDNISOLONE SODIUM SUCCINATE
     Dosage: START AT 10:55?END AT: 11:15
     Route: 042
     Dates: start: 20191203, end: 20191203
  70. METOCLOPRAMIDE. [Concomitant]
     Active Substance: METOCLOPRAMIDE
     Indication: PROPHYLAXIS OF NAUSEA AND VOMITING
     Dates: start: 20191110
  71. ACETAMINOPHEN. [Concomitant]
     Active Substance: ACETAMINOPHEN
     Route: 048
     Dates: start: 20200811, end: 20200811
  72. DIPHENHYDRAMINE HYDROCHLORIDE. [Concomitant]
     Active Substance: DIPHENHYDRAMINE HYDROCHLORIDE
     Dosage: START AT 11:15?END AT: 11:15
     Route: 048
     Dates: start: 20191113, end: 20191113
  73. DIPHENHYDRAMINE HYDROCHLORIDE. [Concomitant]
     Active Substance: DIPHENHYDRAMINE HYDROCHLORIDE
     Dates: start: 20210126, end: 20210126
  74. PALONOSETRON HYDROCHLORIDE. [Concomitant]
     Active Substance: PALONOSETRON HYDROCHLORIDE
     Dates: start: 20200324, end: 20200324
  75. LENOGRASTIM [Concomitant]
     Active Substance: LENOGRASTIM
     Dates: start: 20191217, end: 20191217
  76. PEGFILGRASTIM [Concomitant]
     Active Substance: PEGFILGRASTIM
     Dates: start: 20200110, end: 20200110
  77. APREPITANT. [Concomitant]
     Active Substance: APREPITANT
     Dates: start: 20200324, end: 20200324
  78. ACETAMINOPHEN. [Concomitant]
     Active Substance: ACETAMINOPHEN
     Indication: PREMEDICATION
     Dosage: TIME: 11:45
     Route: 048
     Dates: start: 20191106, end: 20191106
  79. ACETAMINOPHEN. [Concomitant]
     Active Substance: ACETAMINOPHEN
     Dosage: TIME: 11:15?STOP:11:15
     Route: 048
     Dates: start: 20191113, end: 20191113
  80. ACETAMINOPHEN. [Concomitant]
     Active Substance: ACETAMINOPHEN
     Route: 048
     Dates: start: 20201201, end: 20201201
  81. ACETAMINOPHEN. [Concomitant]
     Active Substance: ACETAMINOPHEN
     Route: 048
     Dates: start: 20210323, end: 20210323
  82. DIPHENHYDRAMINE HYDROCHLORIDE. [Concomitant]
     Active Substance: DIPHENHYDRAMINE HYDROCHLORIDE
     Indication: PREMEDICATION
     Dosage: START AT 11:45?END AT: 11:45
     Route: 048
     Dates: start: 20191106, end: 20191106
  83. TRIMETHOPRIM SULFAMETHOXAZOLE [Concomitant]
     Active Substance: SULFAMETHOXAZOLE\TRIMETHOPRIM
     Indication: INFECTION PROPHYLAXIS
     Dates: start: 20191106, end: 20200131
  84. LEVOFLOXACIN HEMIHYDRATE [Concomitant]
     Active Substance: LEVOFLOXACIN
     Indication: INFECTION PROPHYLAXIS
     Dates: start: 20191217, end: 20191220
  85. LENOGRASTIM [Concomitant]
     Active Substance: LENOGRASTIM
     Indication: NEUTROPHIL COUNT DECREASED
     Dates: start: 20200212, end: 20200213
  86. PEGFILGRASTIM [Concomitant]
     Active Substance: PEGFILGRASTIM
     Dates: start: 20200327, end: 20200327
  87. DIPHENHYDRAMINE. [Concomitant]
     Active Substance: DIPHENHYDRAMINE
     Indication: PRURITUS
     Dates: start: 20200908, end: 20201006

REACTIONS (1)
  - Pulmonary embolism [Recovered/Resolved]

NARRATIVE: CASE EVENT DATE: 20191114
